FAERS Safety Report 14237833 (Version 6)
Quarter: 2018Q2

REPORT INFORMATION
  Report Type: Report from Study
  Country: None (occurrence: CO)
  Receive Date: 20171130
  Receipt Date: 20180623
  Transmission Date: 20180711
  Serious: Yes (Hospitalization, Other)
  Sender: FDA-Public Use
  Company Number: CO-ABBVIE-17K-036-2178251-00

PATIENT
  Age: 57 Year
  Sex: Female
  Weight: 57 kg

DRUGS (3)
  1. DIPIRONE [Concomitant]
     Active Substance: METAMIZOLE SODIUM
     Indication: PRODUCT USED FOR UNKNOWN INDICATION
  2. MESALAZINE [Concomitant]
     Active Substance: MESALAMINE
     Indication: PRODUCT USED FOR UNKNOWN INDICATION
  3. HUMIRA [Suspect]
     Active Substance: ADALIMUMAB
     Indication: COLITIS ULCERATIVE
     Route: 058
     Dates: start: 20120307, end: 20170925

REACTIONS (9)
  - Wound infection [Recovering/Resolving]
  - Colostomy infection [Recovering/Resolving]
  - Postoperative wound complication [Recovering/Resolving]
  - Intestinal obstruction [Recovering/Resolving]
  - Post procedural discharge [Not Recovered/Not Resolved]
  - Asthenia [Recovering/Resolving]
  - Procedural pain [Recovering/Resolving]
  - Wound dehiscence [Not Recovered/Not Resolved]
  - Vomiting [Recovering/Resolving]

NARRATIVE: CASE EVENT DATE: 20171114
